FAERS Safety Report 13823181 (Version 17)
Quarter: 2025Q1

REPORT INFORMATION
  Report Type: Report from Study
  Country: DE (occurrence: DE)
  Receive Date: 20170802
  Receipt Date: 20250131
  Transmission Date: 20250409
  Serious: Yes (Life-Threatening, Hospitalization, Other)
  Sender: BRISTOL-MYERS SQUIBB COMPANY
  Company Number: DE-BRISTOL-MYERS SQUIBB COMPANY-BMS-2017-065802

PATIENT
  Age: 60 Year
  Sex: Female

DRUGS (4)
  1. OPDIVO [Suspect]
     Active Substance: NIVOLUMAB
     Indication: Malignant melanoma
     Dosage: 64 MILLIGRAM, Q3WK
     Route: 042
     Dates: start: 20170331, end: 20170526
  2. OPDIVO [Suspect]
     Active Substance: NIVOLUMAB
     Dosage: 192 MILLIGRAM, Q3WK
     Route: 042
     Dates: start: 20170609, end: 20170609
  3. YERVOY [Suspect]
     Active Substance: IPILIMUMAB
     Indication: Malignant melanoma
     Dosage: 192.0 MG, Q3WK
     Route: 042
     Dates: start: 20170331, end: 20170526
  4. TORSEMIDE [Concomitant]
     Active Substance: TORSEMIDE
     Indication: Product used for unknown indication

REACTIONS (22)
  - Arthritis bacterial [Recovered/Resolved with Sequelae]
  - Autoimmune haemolytic anaemia [Recovering/Resolving]
  - Immune-mediated hypothyroidism [Recovered/Resolved]
  - Erysipelas [Recovered/Resolved]
  - Iliac vein occlusion [Recovered/Resolved]
  - Malignant neoplasm progression [Unknown]
  - Pulmonary hypertension [Recovered/Resolved]
  - Atrial fibrillation [Not Recovered/Not Resolved]
  - Hepatitis viral [Recovered/Resolved]
  - Dyspnoea exertional [Recovered/Resolved]
  - Chest discomfort [Unknown]
  - Autoimmune thyroiditis [Recovering/Resolving]
  - Pleural effusion [Recovering/Resolving]
  - Pericardial effusion [Unknown]
  - Metastases to central nervous system [Unknown]
  - Hypotension [Unknown]
  - Infected metastasis [Unknown]
  - Synovial cyst [Unknown]
  - Off label use [Unknown]
  - Diastolic dysfunction [Unknown]
  - Dilatation atrial [Unknown]
  - Atelectasis [Unknown]

NARRATIVE: CASE EVENT DATE: 20170512
